FAERS Safety Report 18198816 (Version 1)
Quarter: 2020Q3

REPORT INFORMATION
  Report Type: Spontaneous
  Country: IT (occurrence: IT)
  Receive Date: 20200826
  Receipt Date: 20200826
  Transmission Date: 20201103
  Serious: Yes (Other)
  Sender: FDA-Public Use
  Company Number: NVSC2020IT235508

PATIENT

DRUGS (1)
  1. NELARABINE [Suspect]
     Active Substance: NELARABINE
     Indication: T-CELL TYPE ACUTE LEUKAEMIA
     Dosage: 1500 MG/M2 (ON DAYS 1, 3 AND 5, EVERY 21 DAYS)
     Route: 065
     Dates: start: 200705, end: 201811

REACTIONS (1)
  - Encephalopathy [Unknown]
